FAERS Safety Report 7437287-7 (Version None)
Quarter: 2011Q2

REPORT INFORMATION
  Report Type: 
  Country: None (occurrence: None)
  Receive Date: 20110426
  Receipt Date: 20110412
  Transmission Date: 20111010
  Serious: Yes (Death, Other)
  Sender: FDA-Public Use
  Company Number: US-CELGENEUS-163-21880-11022339

PATIENT
  Sex: Female
  Weight: 49.94 kg

DRUGS (14)
  1. REVLIMID [Suspect]
     Dosage: 25 MILLIGRAM
     Route: 048
     Dates: start: 20101001
  2. CHOLECALCIFEROL [Concomitant]
     Dosage: 50000 UNITS
     Route: 048
  3. REVLIMID [Suspect]
     Indication: MULTIPLE MYELOMA
     Dosage: 10 MILLIGRAM
     Route: 048
     Dates: start: 20081101
  4. AMBIEN [Concomitant]
     Indication: SLEEP DISORDER
     Dosage: 10 MILLIGRAM
     Route: 048
  5. FEMARA [Concomitant]
     Dosage: 2.5 MILLIGRAM
     Route: 048
  6. DIAZEPAM [Concomitant]
     Indication: ANXIETY
     Dosage: 5 MILLIGRAM
     Route: 048
  7. LEXAPRO [Concomitant]
     Dosage: 5 MILLIGRAM
     Route: 048
  8. REVLIMID [Suspect]
     Dosage: 10 MILLIGRAM
     Route: 048
     Dates: start: 20090101
  9. ACYCLOVIR [Concomitant]
     Dosage: 400 MILLIGRAM
     Route: 048
  10. MEGACE [Concomitant]
     Dosage: 400MG/10ML
     Route: 048
  11. REVLIMID [Suspect]
     Dosage: 20 MILLIGRAM
     Route: 048
     Dates: start: 20081201
  12. FOLIC ACID [Concomitant]
     Dosage: 1 MILLIGRAM
     Route: 048
  13. DEXAMETHASONE [Concomitant]
     Indication: MULTIPLE MYELOMA
     Dosage: 10 MILLIGRAM
     Route: 048
  14. LEVAQUIN [Concomitant]
     Dosage: 500 MILLIGRAM
     Route: 048

REACTIONS (2)
  - BREAST CANCER [None]
  - MULTIPLE MYELOMA [None]
